FAERS Safety Report 13288099 (Version 4)
Quarter: 2017Q1

REPORT INFORMATION
  Report Type: Spontaneous
  Country: US (occurrence: US)
  Receive Date: 20170302
  Receipt Date: 20170323
  Transmission Date: 20170428
  Serious: Yes (Death)
  Sender: FDA-Public Use
  Company Number: US-BAUSCH-BL-2017-005418

PATIENT
  Age: 64 Year
  Sex: Male

DRUGS (1)
  1. XIFAXAN [Suspect]
     Active Substance: RIFAXIMIN
     Indication: HEPATIC CANCER
     Dosage: ONE IN MORNING AND ONE IN NIGHT
     Route: 048
     Dates: start: 20170202

REACTIONS (2)
  - Off label use [Unknown]
  - Hepatic cancer [Fatal]

NARRATIVE: CASE EVENT DATE: 2014
